FAERS Safety Report 9537862 (Version 2)
Quarter: 2013Q4

REPORT INFORMATION
  Report Type: Spontaneous
  Country: US (occurrence: US)
  Receive Date: 20130919
  Receipt Date: 20131018
  Transmission Date: 20140711
  Serious: Yes (Hospitalization, Other)
  Sender: FDA-Public Use
  Company Number: US-MERCK-1309USA007999

PATIENT
  Age: 61 Year
  Sex: Male
  Weight: 86.62 kg

DRUGS (1)
  1. JANUMET [Suspect]
     Indication: DIABETES MELLITUS
     Dosage: DOSE UNKNOWN, Q12H
     Route: 048
     Dates: start: 20120508, end: 20130913

REACTIONS (1)
  - Pancreatitis [Recovered/Resolved]
